FAERS Safety Report 4379866-X (Version None)
Quarter: 2004Q2

REPORT INFORMATION
  Report Type: 
  Country: None (occurrence: None)
  Receive Date: 20040614
  Receipt Date: 20040604
  Transmission Date: 20050107
  Serious: Yes (Hospitalization)
  Sender: FDA-Public Use
  Company Number: 200410318BFR

PATIENT
  Age: 1 Day
  Sex: Female

DRUGS (5)
  1. ADALATE (NIFEDIPINE) [Suspect]
     Indication: PREMATURE LABOUR
     Dosage: 40 MG, TOTAL DAILY, ORAL
     Route: 048
     Dates: start: 20040327, end: 20040416
  2. TRACTOCILE [Concomitant]
  3. CELESTENE [Concomitant]
  4. PRIMPERAN INJ [Concomitant]
  5. SPASFON [Concomitant]

REACTIONS (3)
  - DRUG EXPOSURE DURING PREGNANCY [None]
  - MECONIUM ILEUS [None]
  - PREMATURE BABY [None]
